FAERS Safety Report 5761880-0 (Version None)
Quarter: 2008Q2

REPORT INFORMATION
  Report Type: 
  Country: None (occurrence: None)
  Receive Date: 20080602
  Receipt Date: 20080519
  Transmission Date: 20081010
  Serious: Yes (Other)
  Sender: FDA-Public Use
  Company Number: 08-000749

PATIENT
  Age: 17 Year
  Sex: Female

DRUGS (5)
  1. DORYX [Suspect]
     Dosage: 75 MG, QD, ORAL
     Route: 048
     Dates: start: 20060622
  2. DORYX [Suspect]
     Dosage: 100 MG, ORAL
     Route: 048
     Dates: start: 20080103
  3. TOPAMAX [Concomitant]
  4. MERIDIA [Concomitant]
  5. RELPAX [Concomitant]

REACTIONS (3)
  - ACNE [None]
  - BENIGN INTRACRANIAL HYPERTENSION [None]
  - WEIGHT INCREASED [None]
